FAERS Safety Report 15904992 (Version 1)
Quarter: 2019Q1

REPORT INFORMATION
  Report Type: Report from Study
  Country: JP (occurrence: JP)
  Receive Date: 20190204
  Receipt Date: 20190204
  Transmission Date: 20190417
  Serious: Yes (Other)
  Sender: FDA-Public Use
  Company Number: JP-ROCHE-2254689

PATIENT
  Sex: Female

DRUGS (5)
  1. PERTUZUMAB. [Suspect]
     Active Substance: PERTUZUMAB
     Indication: BREAST CANCER
     Dosage: FORM STRENGTH: 420MG/14ML
     Route: 041
     Dates: start: 20170623, end: 20170623
  2. ERIBULIN MESILATE [Suspect]
     Active Substance: ERIBULIN
     Indication: BREAST CANCER
     Dosage: DOSAGE IS UNCERTAIN.
     Route: 041
  3. TRASTUZUMAB. [Suspect]
     Active Substance: TRASTUZUMAB
     Indication: BREAST CANCER
     Route: 041
     Dates: start: 20170623, end: 20170623
  4. TRASTUZUMAB. [Suspect]
     Active Substance: TRASTUZUMAB
     Route: 041
     Dates: start: 20170714, end: 20180827
  5. PERTUZUMAB. [Suspect]
     Active Substance: PERTUZUMAB
     Route: 041
     Dates: start: 20170714, end: 20180827

REACTIONS (2)
  - Malignant ascites [Unknown]
  - Pyelitis [Recovered/Resolved]

NARRATIVE: CASE EVENT DATE: 20180828
